FAERS Safety Report 9246073 (Version 1)
Quarter: 2013Q2

REPORT INFORMATION
  Report Type: Spontaneous
  Country: TW (occurrence: TW)
  Receive Date: 20130422
  Receipt Date: 20130422
  Transmission Date: 20140414
  Serious: Yes (Other)
  Sender: FDA-Public Use
  Company Number: TW-NOVEN-13TW006599

PATIENT
  Age: 50 Year
  Sex: Female

DRUGS (4)
  1. LITHIUM CARBONATE [Suspect]
     Indication: BIPOLAR DISORDER
     Dosage: 600 MG, QD
     Route: 065
  2. VALPROIC ACID [Suspect]
     Indication: BIPOLAR DISORDER
     Dosage: 1000 MG, QD
     Route: 065
     Dates: end: 2008
  3. VALPROIC ACID [Suspect]
     Dosage: 1400 MG, QD
     Route: 065
     Dates: start: 2008, end: 2008
  4. VALPROIC ACID [Suspect]
     Dosage: 1000 MG, QD
     Route: 065
     Dates: start: 2008, end: 2008

REACTIONS (4)
  - Renal failure chronic [Unknown]
  - Haemoglobin decreased [Unknown]
  - Thrombocytopenia [Unknown]
  - Toxicity to various agents [Unknown]
